FAERS Safety Report 20103205 (Version 2)
Quarter: 2021Q4

REPORT INFORMATION
  Report Type: Spontaneous
  Country: IT (occurrence: IT)
  Receive Date: 20211123
  Receipt Date: 20211202
  Transmission Date: 20220303
  Serious: Yes (Other)
  Sender: FDA-Public Use
  Company Number: IT-PFIZER INC-202101589150

PATIENT
  Age: 74 Year
  Sex: Male

DRUGS (2)
  1. IRINOTECAN HYDROCHLORIDE [Suspect]
     Active Substance: IRINOTECAN HYDROCHLORIDE
     Indication: Ewing^s sarcoma recurrent
     Dosage: UNK
     Dates: start: 202001
  2. TEMOZOLOMIDE [Concomitant]
     Active Substance: TEMOZOLOMIDE
     Indication: Ewing^s sarcoma recurrent
     Dosage: UNK
     Dates: start: 202001

REACTIONS (3)
  - Gastrointestinal toxicity [Unknown]
  - Diarrhoea [Unknown]
  - Off label use [Unknown]
